FAERS Safety Report 20829816 (Version 1)
Quarter: 2022Q2

REPORT INFORMATION
  Report Type: Spontaneous
  Country: US (occurrence: US)
  Receive Date: 20220513
  Receipt Date: 20220513
  Transmission Date: 20220721
  Serious: No
  Sender: FDA-Public Use
  Company Number: US-009507513-2204USA006098

PATIENT
  Age: 87 Year
  Sex: Female

DRUGS (2)
  1. BELSOMRA [Suspect]
     Active Substance: SUVOREXANT
     Indication: Insomnia
     Dosage: 1 PILL MINUTES BEFORE BED
     Route: 048
     Dates: start: 20220413
  2. CANDESARTAN [Concomitant]
     Active Substance: CANDESARTAN
     Dosage: 2-8 MG TABLETS EVERY MORNING

REACTIONS (2)
  - Drug ineffective [Not Recovered/Not Resolved]
  - Ill-defined disorder [Not Recovered/Not Resolved]

NARRATIVE: CASE EVENT DATE: 20220413
